FAERS Safety Report 17593287 (Version 2)
Quarter: 2020Q1

REPORT INFORMATION
  Report Type: Spontaneous
  Country: CZ (occurrence: CZ)
  Receive Date: 20200327
  Receipt Date: 20200330
  Transmission Date: 20200409
  Serious: Yes (Death, Hospitalization)
  Sender: FDA-Public Use
  Company Number: CZ-B.I. PHARMACEUTICALS,INC./RIDGEFIELD-2020-BI-016321

PATIENT
  Age: 85 Year
  Sex: Male

DRUGS (1)
  1. PRAXBIND [Suspect]
     Active Substance: IDARUCIZUMAB
     Indication: ABDOMINAL OPERATION
     Route: 042
     Dates: start: 202002, end: 202002

REACTIONS (1)
  - Surgery [Fatal]

NARRATIVE: CASE EVENT DATE: 202002
